FAERS Safety Report 5932298-2 (Version None)
Quarter: 2008Q4

REPORT INFORMATION
  Report Type: 
  Country: None (occurrence: None)
  Receive Date: 20081028
  Receipt Date: 20081022
  Transmission Date: 20090506
  Serious: Yes (Death, Other)
  Sender: FDA-Public Use
  Company Number: US-CELGENEUS-163-21880-08101434

PATIENT
  Sex: Male

DRUGS (2)
  1. REVLIMID [Suspect]
     Indication: MULTIPLE MYELOMA
     Route: 048
     Dates: start: 20080723, end: 20080101
  2. REVLIMID [Suspect]
     Route: 048
     Dates: start: 20080530, end: 20080601

REACTIONS (2)
  - DEATH [None]
  - STEVENS-JOHNSON SYNDROME [None]
